FAERS Safety Report 9955785 (Version 1)
Quarter: 2014Q1

REPORT INFORMATION
  Report Type: Report from Study
  Country: US (occurrence: US)
  Receive Date: 20140304
  Receipt Date: 20140304
  Transmission Date: 20141002
  Serious: No
  Sender: FDA-Public Use
  Company Number: US-ABBVIE-13P-163-1090024-00

PATIENT
  Age: 67 Year
  Sex: Female

DRUGS (24)
  1. HUMIRA [Suspect]
     Indication: RHEUMATOID ARTHRITIS
     Dates: start: 20130409
  2. METHOTREXATE [Concomitant]
     Indication: RHEUMATOID ARTHRITIS
  3. PLAQUENIL [Concomitant]
     Indication: RHEUMATOID ARTHRITIS
  4. ASA [Concomitant]
     Indication: PROPHYLAXIS
     Dosage: 81MG DAILY
  5. DOCUSATE SODIUM [Concomitant]
     Indication: CONSTIPATION
     Dosage: TWICE A DAY AS NEEDED
  6. CALCIUM PLUS D3 [Concomitant]
     Indication: VITAMIN SUPPLEMENTATION
     Dosage: DAILY CALCIUM 600 PLUS D3 400
  7. CLARITIN-D [Concomitant]
     Indication: HYPERSENSITIVITY
  8. LISINOPRIL + HIDROCLOROTIAZIDA [Concomitant]
     Indication: BLOOD PRESSURE
     Dosage: 10-12.5 1/2 TABLET DAILY
  9. METFORMIN HCL [Concomitant]
     Indication: DIABETES MELLITUS
     Dosage: 850MG-1/2 TABLET MORNING DAILY
  10. LOVAZA [Concomitant]
     Indication: SUPPLEMENTATION THERAPY
  11. PANTOPRAZOL [Concomitant]
     Indication: DYSPEPSIA
     Dosage: 40MG-1/2 TABLET DAILY
  12. POLYETHYLENE POWDER [Concomitant]
     Indication: CONSTIPATION
     Dosage: IN WATER DAILY AS NEEDED
  13. VENTOLIN [Concomitant]
     Indication: HYPERSENSITIVITY
     Dosage: EVERY 8 HOURS AS NEEDED
     Route: 055
  14. D3 [Concomitant]
     Indication: PRODUCT USED FOR UNKNOWN INDICATION
     Dosage: 3000 UNITS DAILY WITH MEALS
  15. ZETIA [Concomitant]
     Indication: BLOOD CHOLESTEROL
     Dosage: 10MG DAILY
  16. CLOBETASOL PROPIONATE [Concomitant]
     Indication: PSORIASIS
  17. CALCIPOTRIENE [Concomitant]
     Indication: PSORIASIS
     Dosage: 0.005/5
  18. VECTICAL [Concomitant]
     Indication: PSORIASIS
  19. NAPROXEN [Concomitant]
     Indication: RHEUMATOID ARTHRITIS
     Dosage: TWICE DAILY AS NEEDED
  20. TRAMADOL [Concomitant]
     Indication: RHEUMATOID ARTHRITIS
     Dosage: 1-2 TABLETS AS NEEDED
  21. FOLIC ACID [Concomitant]
     Indication: PRODUCT USED FOR UNKNOWN INDICATION
  22. LATANOPROST [Concomitant]
     Indication: PRODUCT USED FOR UNKNOWN INDICATION
     Dosage: 1 DROP RIGHT EYE BEDTIME DAILY
  23. ARTIFICIAL TEARS [Concomitant]
     Indication: PRODUCT USED FOR UNKNOWN INDICATION
     Dosage: EACH EYE
  24. COLGATE PREVENTADENT [Concomitant]
     Indication: GINGIVAL PAIN
     Dosage: 500 MPM TOOTHPASTE

REACTIONS (2)
  - Nasal congestion [Not Recovered/Not Resolved]
  - Nasal congestion [Not Recovered/Not Resolved]
